FAERS Safety Report 19286535 (Version 1)
Quarter: 2021Q2

REPORT INFORMATION
  Report Type: Other
  Country: CA (occurrence: CA)
  Receive Date: 20210522
  Receipt Date: 20210522
  Transmission Date: 20210717
  Serious: Yes (Other)
  Sender: FDA-Public Use
  Company Number: CA-CELLTRION INC.-2021CA006755

PATIENT

DRUGS (24)
  1. AMLODIPINE BESILATE [Concomitant]
     Active Substance: AMLODIPINE BESYLATE
     Route: 048
  2. FERROUS FUMARATE [Concomitant]
     Active Substance: FERROUS FUMARATE
     Route: 048
  3. LEVETIRACETAM. [Concomitant]
     Active Substance: LEVETIRACETAM
     Route: 048
  4. TELMISARTAN. [Concomitant]
     Active Substance: TELMISARTAN
     Route: 048
  5. TYLENOL [Concomitant]
     Active Substance: ACETAMINOPHEN
     Route: 048
  6. RITUXIMAB (UNKNOWN) [Suspect]
     Active Substance: RITUXIMAB
     Indication: MICROSCOPIC POLYANGIITIS
     Dosage: UNK, 1 EVERY 1 WEEKS
     Route: 042
  7. FOLIC ACID. [Concomitant]
     Active Substance: FOLIC ACID
     Route: 048
  8. SODIUM CITRATE. [Concomitant]
     Active Substance: SODIUM CITRATE
  9. IRON [Concomitant]
     Active Substance: IRON
  10. AZATHIOPRINE. [Concomitant]
     Active Substance: AZATHIOPRINE
     Route: 048
  11. BENADRYL [Concomitant]
     Active Substance: DIPHENHYDRAMINE HYDROCHLORIDE
     Route: 048
  12. PREDNISONE. [Concomitant]
     Active Substance: PREDNISONE
     Route: 065
  13. RITUXIMAB (UNKNOWN) [Suspect]
     Active Substance: RITUXIMAB
     Indication: END STAGE RENAL DISEASE
     Dosage: 500 MG
     Route: 042
  14. BACITRACIN ZINC;GRAMICIDIN;POLYMYXIN B SULFATE [Concomitant]
  15. BIOTIN [Concomitant]
     Active Substance: BIOTIN
     Route: 048
  16. HEPARIN [Concomitant]
     Active Substance: HEPARIN SODIUM
     Route: 042
  17. METHYLPREDNISOLONE SODIUM SUCCINATE. [Concomitant]
     Active Substance: METHYLPREDNISOLONE SODIUM SUCCINATE
     Route: 042
  18. SEVELAMER HYDROCHLORIDE. [Concomitant]
     Active Substance: SEVELAMER HYDROCHLORIDE
     Route: 048
  19. SODIUM FERRIC GLUCONATE COMPLEX IN SUCROSE INJECTION [Concomitant]
     Active Substance: SODIUM FERRIC GLUCONATE COMPLEX
     Route: 042
  20. VITAMIN C [Concomitant]
     Active Substance: ASCORBIC ACID
  21. CALCIUM [Concomitant]
     Active Substance: CALCIUM
     Dosage: UNK
     Route: 048
  22. TRANEXAMIC ACID. [Concomitant]
     Active Substance: TRANEXAMIC ACID
     Route: 048
  23. HYDROXYCHLOROQUINE SULFATE. [Concomitant]
     Active Substance: HYDROXYCHLOROQUINE SULFATE
  24. PANTOPRAZOLE [Concomitant]
     Active Substance: PANTOPRAZOLE
     Route: 048

REACTIONS (2)
  - Weight decreased [Unknown]
  - Off label use [Unknown]
